FAERS Safety Report 8615845-1 (Version None)
Quarter: 2012Q3

REPORT INFORMATION
  Report Type: 
  Country: None (occurrence: None)
  Receive Date: 20120823
  Receipt Date: 20120820
  Transmission Date: 20120928
  Serious: Yes (Other)
  Sender: FDA-Public Use
  Company Number: US-ROCHE-1101837

PATIENT
  Sex: Female
  Weight: 52.619 kg

DRUGS (3)
  1. RIBAVIRIN [Suspect]
     Indication: HEPATITIS C
     Route: 048
     Dates: start: 20120516, end: 20120604
  2. INCIVEK [Suspect]
     Indication: HEPATITIS C
     Route: 048
     Dates: start: 20120516, end: 20120604
  3. PEGASYS [Suspect]
     Indication: HEPATITIS C
     Route: 058
     Dates: start: 20120516, end: 20120604

REACTIONS (3)
  - MALAISE [None]
  - WHITE BLOOD CELL COUNT DECREASED [None]
  - LABORATORY TEST ABNORMAL [None]
